FAERS Safety Report 6640752-3 (Version None)
Quarter: 2010Q1

REPORT INFORMATION
  Report Type: 
  Country: None (occurrence: None)
  Receive Date: 20100318
  Receipt Date: 20100216
  Transmission Date: 20100710
  Serious: Yes (Other)
  Sender: FDA-Public Use
  Company Number: JP-PFIZER INC-2010032916

PATIENT
  Sex: Female

DRUGS (5)
  1. LIPITOR [Suspect]
     Indication: HYPERLIPIDAEMIA
  2. BROMAZEPAM [Concomitant]
  3. AKINETON [Concomitant]
  4. ZYPREXA [Concomitant]
  5. GOODMIN [Concomitant]

REACTIONS (1)
  - DIPLOPIA [None]
